FAERS Safety Report 16917112 (Version 2)
Quarter: 2019Q4

REPORT INFORMATION
  Report Type: Spontaneous
  Country: US (occurrence: US)
  Receive Date: 20191015
  Receipt Date: 20191107
  Transmission Date: 20200122
  Serious: Yes (Death, Life-Threatening, Hospitalization, Other)
  Sender: FDA-Public Use
  Company Number: US-DRREDDYS-USA/USA/19/0115147

PATIENT
  Age: 64 Year
  Sex: Female

DRUGS (3)
  1. HEPARIN SODIUM. [Suspect]
     Active Substance: HEPARIN SODIUM
     Indication: PRODUCT USED FOR UNKNOWN INDICATION
     Dosage: WHILE IN REHAB
     Route: 058
  2. HEPARIN SODIUM. [Suspect]
     Active Substance: HEPARIN SODIUM
     Dosage: DRIP
     Route: 065
  3. COUMADIN [Concomitant]
     Active Substance: WARFARIN SODIUM
     Indication: ANTIPHOSPHOLIPID SYNDROME
     Dosage: RE-STARTED 1 WEEK LATER

REACTIONS (4)
  - Cerebellar embolism [Fatal]
  - Heparin-induced thrombocytopenia [Fatal]
  - Cerebellar infarction [Fatal]
  - Embolic cerebral infarction [Fatal]
